FAERS Safety Report 25587249 (Version 3)
Quarter: 2025Q4

REPORT INFORMATION
  Report Type: Spontaneous
  Country: BR (occurrence: BR)
  Receive Date: 20250721
  Receipt Date: 20251014
  Transmission Date: 20260118
  Serious: Yes (Hospitalization, Other)
  Sender: ASTELLAS
  Company Number: BR-PFIZER INC-PV202500084156

PATIENT
  Age: 51 Year
  Sex: Male

DRUGS (4)
  1. PADCEV [Suspect]
     Active Substance: ENFORTUMAB VEDOTIN-EJFV
     Indication: Product used for unknown indication
     Dosage: D1?POWDER FOR SOLUTION FOR INFUSION
     Route: 042
     Dates: start: 20250501
  2. PADCEV [Suspect]
     Active Substance: ENFORTUMAB VEDOTIN-EJFV
     Dosage: UNK?POWDER FOR SOLUTION FOR INFUSION
     Route: 042
     Dates: start: 20250520
  3. PADCEV [Suspect]
     Active Substance: ENFORTUMAB VEDOTIN-EJFV
     Dosage: C3D8?POWDER FOR SOLUTION FOR INFUSION
     Route: 042
  4. PEMBROLIZUMAB [Concomitant]
     Active Substance: PEMBROLIZUMAB
     Indication: Product used for unknown indication
     Route: 065
     Dates: start: 20250501

REACTIONS (3)
  - Duodenal obstruction [Recovered/Resolved]
  - Sepsis [Recovered/Resolved]
  - Weight increased [Unknown]

NARRATIVE: CASE EVENT DATE: 20250506
